FAERS Safety Report 20874174 (Version 1)
Quarter: 2022Q2

REPORT INFORMATION
  Report Type: Spontaneous
  Country: US (occurrence: US)
  Receive Date: 20220525
  Receipt Date: 20220525
  Transmission Date: 20220721
  Serious: Yes (Other)
  Sender: FDA-Public Use
  Company Number: US-SUNOVION-2022SUN001608

PATIENT
  Sex: Female

DRUGS (2)
  1. LATUDA [Suspect]
     Active Substance: LURASIDONE HYDROCHLORIDE
     Dosage: 20 MG
     Route: 048
  2. CAPLYTA [Concomitant]
     Active Substance: LUMATEPERONE
     Dosage: UNK
     Route: 065

REACTIONS (5)
  - Cerebral haemorrhage [Unknown]
  - Suicidal ideation [Recovered/Resolved]
  - Seizure [Unknown]
  - Constipation [Unknown]
  - Photosensitivity reaction [Unknown]
